FAERS Safety Report 11234195 (Version 2)
Quarter: 2015Q3

REPORT INFORMATION
  Report Type: Spontaneous
  Country: US (occurrence: US)
  Receive Date: 20150702
  Receipt Date: 20150707
  Transmission Date: 20151125
  Serious: No
  Sender: FDA-Public Use
  Company Number: US-PFIZER INC-2015217493

PATIENT

DRUGS (1)
  1. ZYVOX [Suspect]
     Active Substance: LINEZOLID
     Indication: MYCOBACTERIUM FORTUITUM INFECTION
     Dosage: UNK
     Route: 048
     Dates: end: 201206

REACTIONS (2)
  - Tongue discolouration [Recovering/Resolving]
  - Cough [Recovering/Resolving]
